FAERS Safety Report 23697443 (Version 1)
Quarter: 2024Q2

REPORT INFORMATION
  Report Type: Spontaneous
  Country: ES (occurrence: ES)
  Receive Date: 20240402
  Receipt Date: 20240402
  Transmission Date: 20240716
  Serious: Yes (Hospitalization, Other)
  Sender: FDA-Public Use
  Company Number: ES-002147023-NVSC2022ES103277

PATIENT
  Sex: Male

DRUGS (30)
  1. ARIPIPRAZOLE [Suspect]
     Active Substance: ARIPIPRAZOLE
     Indication: Schizoaffective disorder
     Dosage: 10 MG, QD
     Route: 065
     Dates: start: 201702, end: 201705
  2. ARIPIPRAZOLE [Suspect]
     Active Substance: ARIPIPRAZOLE
     Dosage: 400 MG PER 28 DAYS
     Route: 065
     Dates: start: 201712
  3. AMISULPRIDE [Suspect]
     Active Substance: AMISULPRIDE
     Indication: Schizoaffective disorder
     Dosage: 400 MG, QD
     Route: 065
     Dates: start: 1994, end: 201512
  4. AMISULPRIDE [Suspect]
     Active Substance: AMISULPRIDE
     Indication: Abnormal behaviour
     Dosage: 400 MG, QD
     Route: 065
     Dates: start: 201606, end: 201702
  5. AMISULPRIDE [Suspect]
     Active Substance: AMISULPRIDE
     Dosage: 600 MG, QD
     Route: 065
     Dates: start: 201604, end: 201606
  6. AMISULPRIDE [Suspect]
     Active Substance: AMISULPRIDE
     Dosage: 800 MG, QD
     Route: 065
     Dates: start: 201512, end: 201604
  7. CLOBAZAM [Suspect]
     Active Substance: CLOBAZAM
     Indication: Schizoaffective disorder
     Dosage: UNK
     Route: 065
     Dates: start: 1994, end: 20160118
  8. CLONAZEPAM [Suspect]
     Active Substance: CLONAZEPAM
     Indication: Schizoaffective disorder
     Dosage: UNK
     Route: 065
     Dates: start: 201702
  9. ESCITALOPRAM [Suspect]
     Active Substance: ESCITALOPRAM OXALATE
     Dosage: 15 MG, QD
     Route: 065
     Dates: start: 1994, end: 201512
  10. ESCITALOPRAM [Suspect]
     Active Substance: ESCITALOPRAM OXALATE
     Dosage: 15 MG, QD
     Route: 065
     Dates: start: 201606, end: 201609
  11. ESCITALOPRAM [Suspect]
     Active Substance: ESCITALOPRAM OXALATE
     Indication: Schizoaffective disorder
     Dosage: 20 MG, QD
     Route: 065
     Dates: start: 201702, end: 201705
  12. HALOPERIDOL [Suspect]
     Active Substance: HALOPERIDOL
     Indication: Schizoaffective disorder
     Dosage: UNK
     Route: 065
     Dates: start: 201705, end: 201712
  13. LORMETAZEPAM [Suspect]
     Active Substance: LORMETAZEPAM
     Indication: Abnormal behaviour
     Dosage: UNK
     Route: 065
     Dates: start: 20160425, end: 20160613
  14. LORMETAZEPAM [Suspect]
     Active Substance: LORMETAZEPAM
     Indication: Schizoaffective disorder
  15. LEVOMEPROMAZINE [Suspect]
     Active Substance: LEVOMEPROMAZINE
     Indication: Schizoaffective disorder
     Dosage: 100 MG, QD
     Route: 065
     Dates: start: 201610, end: 201702
  16. LITHIUM [Suspect]
     Active Substance: LITHIUM
     Dosage: 1200 MG
     Route: 065
     Dates: start: 201712
  17. LITHIUM [Suspect]
     Active Substance: LITHIUM
     Indication: Schizoaffective disorder
     Dosage: 600 MG, QD
     Route: 065
     Dates: start: 201702, end: 201705
  18. LITHIUM [Suspect]
     Active Substance: LITHIUM
     Dosage: 800 MG, QD
     Route: 065
     Dates: start: 1994, end: 201604
  19. LORAZEPAM [Suspect]
     Active Substance: LORAZEPAM
     Indication: Schizoaffective disorder
     Dosage: UNK
     Route: 065
     Dates: start: 20160425, end: 20161004
  20. LORAZEPAM [Suspect]
     Active Substance: LORAZEPAM
     Dosage: UNK
     Route: 065
     Dates: start: 201705, end: 201712
  21. OLANZAPINE [Suspect]
     Active Substance: OLANZAPINE
     Indication: Schizoaffective disorder
     Dosage: 20 MG, QD
     Route: 048
     Dates: start: 201610, end: 201702
  22. OLANZAPINE [Suspect]
     Active Substance: OLANZAPINE
     Dosage: 20 MG, QD
     Route: 048
     Dates: start: 201705, end: 201712
  23. TRAZODONE [Suspect]
     Active Substance: TRAZODONE HYDROCHLORIDE
     Indication: Schizoaffective disorder
     Dosage: 200 MG, QD
     Route: 065
     Dates: start: 1994, end: 201512
  24. TRAZODONE [Suspect]
     Active Substance: TRAZODONE HYDROCHLORIDE
     Dosage: 200 MG, QD
     Route: 065
     Dates: start: 201606, end: 201609
  25. VALPROATE [Suspect]
     Active Substance: VALPROIC ACID
     Dosage: 1000 MG, QD
     Route: 065
     Dates: start: 201610, end: 201705
  26. VALPROATE [Suspect]
     Active Substance: VALPROIC ACID
     Indication: Schizoaffective disorder
     Dosage: 500 MG, QD
     Route: 065
     Dates: start: 201606, end: 201609
  27. FLUOXETINE [Interacting]
     Active Substance: FLUOXETINE HYDROCHLORIDE
     Indication: Abnormal behaviour
     Dosage: 20 MG, PER DAY
     Route: 065
     Dates: start: 201604, end: 201606
  28. FLUOXETINE [Interacting]
     Active Substance: FLUOXETINE HYDROCHLORIDE
     Indication: Schizoaffective disorder
  29. QUETIAPINE [Interacting]
     Active Substance: QUETIAPINE
     Indication: Abnormal behaviour
     Dosage: 100 MG PER DAY
     Route: 065
     Dates: start: 201604, end: 201606
  30. QUETIAPINE [Interacting]
     Active Substance: QUETIAPINE
     Indication: Schizoaffective disorder

REACTIONS (16)
  - Deep vein thrombosis [Recovered/Resolved]
  - Gastrointestinal haemorrhage [Recovered/Resolved]
  - Suicide attempt [Unknown]
  - Drug ineffective [Unknown]
  - Intentional overdose [Unknown]
  - Hyperprolactinaemia [Recovered/Resolved]
  - Drug level increased [Unknown]
  - Drug interaction [Unknown]
  - Product use in unapproved indication [Unknown]
  - Insomnia [Recovered/Resolved]
  - Sedation [Recovered/Resolved]
  - Extrapyramidal disorder [Recovered/Resolved]
  - Behaviour disorder [Unknown]
  - Emotional disorder [Unknown]
  - Sexually inappropriate behaviour [Unknown]
  - Condition aggravated [Unknown]

NARRATIVE: CASE EVENT DATE: 20160101
